FAERS Safety Report 6911390-X (Version None)
Quarter: 2010Q3

REPORT INFORMATION
  Report Type: 
  Country: None (occurrence: None)
  Receive Date: 20100806
  Receipt Date: 20100726
  Transmission Date: 20110219
  Serious: Yes (Other)
  Sender: FDA-Public Use
  Company Number: US-PFIZER INC-2010094320

PATIENT
  Sex: Female

DRUGS (18)
  1. CHANTIX [Suspect]
     Indication: SMOKING CESSATION THERAPY
     Dosage: 0.5 MG, 1X/DAY
     Route: 048
     Dates: start: 20100726
  2. CYMBALTA [Suspect]
     Dosage: UNK
     Route: 048
  3. SERZONE [Suspect]
     Dosage: UNK
     Route: 048
  4. PAXIL [Suspect]
     Dosage: UNK
  5. ADDERALL 10 [Suspect]
     Dosage: 360 MG, AS NEEDED
  6. ADVAIR DISKUS 100/50 [Concomitant]
     Indication: DYSPNOEA
     Dosage: 250/50 MCG, TWICE DAILY
  7. NEURONTIN [Concomitant]
     Indication: NEUROPATHY PERIPHERAL
     Dosage: UNK
  8. LISINOPRIL [Concomitant]
     Indication: HYPERTENSION
     Dosage: 10 MG, UNK
     Route: 048
  9. XANAX [Concomitant]
     Indication: ANXIETY
     Dosage: 2 MG, 3X/DAY
     Route: 048
  10. HYDROCHLOROTHIAZIDE [Concomitant]
     Indication: DIURETIC THERAPY
     Dosage: 5 MG, UNK
     Route: 048
  11. LIDODERM [Concomitant]
     Indication: HERPES ZOSTER
     Dosage: UNK
  12. OXYCODONE [Concomitant]
     Indication: PAIN
     Dosage: 50 MG, UNK
     Route: 048
  13. VOLTAREN [Concomitant]
     Indication: OSTEOARTHRITIS
     Dosage: UNK
  14. SOMA [Concomitant]
     Indication: MUSCLE RELAXANT THERAPY
     Dosage: UNK
     Route: 048
  15. PERCOCET [Concomitant]
     Indication: NEUROPATHY PERIPHERAL
     Dosage: UNK
     Route: 048
  16. PERCOCET [Concomitant]
     Indication: BACK PAIN
  17. LEVOSALBUTAMOL [Concomitant]
     Indication: DYSPNOEA
     Dosage: UNK
  18. FENTANYL [Concomitant]
     Dosage: 150 MG, UNK

REACTIONS (2)
  - ANHEDONIA [None]
  - DEPRESSION [None]
